FAERS Safety Report 6322799-X (Version None)
Quarter: 2009Q3

REPORT INFORMATION
  Report Type: 
  Country: None (occurrence: None)
  Receive Date: 20090824
  Receipt Date: 20090309
  Transmission Date: 20100115
  Serious: No
  Sender: FDA-Public Use
  Company Number: US-ABBOTT-09P-163-0561194-00

PATIENT
  Sex: Male

DRUGS (9)
  1. NIASPAN [Suspect]
     Indication: BLOOD CHOLESTEROL INCREASED
     Dates: start: 20090222
  2. PROVOCHOLINE [Concomitant]
     Indication: DRUG USE FOR UNKNOWN INDICATION
  3. TYLENOL (CAPLET) [Concomitant]
     Indication: DRUG USE FOR UNKNOWN INDICATION
  4. ASPIRIN [Concomitant]
     Indication: DRUG USE FOR UNKNOWN INDICATION
  5. FLONASE [Concomitant]
     Indication: DRUG USE FOR UNKNOWN INDICATION
  6. B100 COMPLEX TIME RELEASED B3 COMPONENT [Concomitant]
     Indication: DRUG USE FOR UNKNOWN INDICATION
  7. VIT C [Concomitant]
     Indication: DRUG USE FOR UNKNOWN INDICATION
  8. FISH OIL [Concomitant]
     Indication: DRUG USE FOR UNKNOWN INDICATION
  9. SUDAFED S.A. [Concomitant]
     Indication: DRUG USE FOR UNKNOWN INDICATION

REACTIONS (3)
  - FLUSHING [None]
  - GENERALISED ERYTHEMA [None]
  - PARAESTHESIA [None]
